FAERS Safety Report 7238171-4 (Version None)
Quarter: 2011Q1

REPORT INFORMATION
  Report Type: 
  Country: None (occurrence: None)
  Receive Date: 20110119
  Receipt Date: 20110119
  Transmission Date: 20110831
  Serious: Yes (Other)
  Sender: FDA-Public Use
  Company Number: None

PATIENT
  Age: 60 Year
  Sex: Female
  Weight: 74.8435 kg

DRUGS (1)
  1. TINDAMAX [Suspect]
     Indication: VAGINAL INFECTION
     Dosage: 500 MG QD PO
     Route: 048
     Dates: start: 20101118, end: 20101128

REACTIONS (2)
  - NAUSEA [None]
  - VOMITING [None]
